FAERS Safety Report 5694393-5 (Version None)
Quarter: 2008Q2

REPORT INFORMATION
  Report Type: 
  Country: None (occurrence: None)
  Receive Date: 20080402
  Receipt Date: 20080318
  Transmission Date: 20081010
  Serious: Yes (Hospitalization)
  Sender: FDA-Public Use
  Company Number: DSJ-2008-00052 (1)

PATIENT
  Age: 67 Year
  Sex: Male

DRUGS (13)
  1. BLINDED CS-866 OR PLACEBO (OLMESARTAN MEDOXOMIL) (TABLET) (OLMESARTAN [Suspect]
     Indication: DIABETIC NEPHROPATHY
     Dosage: 10 MG (10 MG, 1 IN 1 D), PER ORAL; 20 MG (20 MG, 1 IN 1 D), PER ORAL; 40 MG (40 MG, 1 IN 1 D), PER O
     Route: 048
     Dates: start: 20041228, end: 20050124
  2. BLINDED CS-866 OR PLACEBO (OLMESARTAN MEDOXOMIL) (TABLET) (OLMESARTAN [Suspect]
     Indication: TYPE 2 DIABETES MELLITUS
     Dosage: 10 MG (10 MG, 1 IN 1 D), PER ORAL; 20 MG (20 MG, 1 IN 1 D), PER ORAL; 40 MG (40 MG, 1 IN 1 D), PER O
     Route: 048
     Dates: start: 20041228, end: 20050124
  3. BLINDED CS-866 OR PLACEBO (OLMESARTAN MEDOXOMIL) (TABLET) (OLMESARTAN [Suspect]
     Indication: DIABETIC NEPHROPATHY
     Dosage: 10 MG (10 MG, 1 IN 1 D), PER ORAL; 20 MG (20 MG, 1 IN 1 D), PER ORAL; 40 MG (40 MG, 1 IN 1 D), PER O
     Route: 048
     Dates: start: 20050125, end: 20050221
  4. BLINDED CS-866 OR PLACEBO (OLMESARTAN MEDOXOMIL) (TABLET) (OLMESARTAN [Suspect]
     Indication: TYPE 2 DIABETES MELLITUS
     Dosage: 10 MG (10 MG, 1 IN 1 D), PER ORAL; 20 MG (20 MG, 1 IN 1 D), PER ORAL; 40 MG (40 MG, 1 IN 1 D), PER O
     Route: 048
     Dates: start: 20050125, end: 20050221
  5. BLINDED CS-866 OR PLACEBO (OLMESARTAN MEDOXOMIL) (TABLET) (OLMESARTAN [Suspect]
     Indication: DIABETIC NEPHROPATHY
     Dosage: 10 MG (10 MG, 1 IN 1 D), PER ORAL; 20 MG (20 MG, 1 IN 1 D), PER ORAL; 40 MG (40 MG, 1 IN 1 D), PER O
     Route: 048
     Dates: start: 20050222, end: 20071228
  6. BLINDED CS-866 OR PLACEBO (OLMESARTAN MEDOXOMIL) (TABLET) (OLMESARTAN [Suspect]
     Indication: TYPE 2 DIABETES MELLITUS
     Dosage: 10 MG (10 MG, 1 IN 1 D), PER ORAL; 20 MG (20 MG, 1 IN 1 D), PER ORAL; 40 MG (40 MG, 1 IN 1 D), PER O
     Route: 048
     Dates: start: 20050222, end: 20071228
  7. NATRILIX SR (INDAPAMIDE) (INDAPAMIDE) [Concomitant]
  8. ALLOPURINOL [Concomitant]
  9. ADALAT RETARD (NIFEDIPINE) (NIFEDIPINE) [Concomitant]
  10. BETALOC XL (METOPROLOL TARTRATE) (METOPROLOL TARTRATE) [Concomitant]
  11. ZOCOR [Concomitant]
  12. LISINOPRIL [Concomitant]
  13. CARUDRA XL (DOXAZOSIN MESILATE) (DOXAZOSIN MESILATE) [Concomitant]

REACTIONS (7)
  - ATRIAL FLUTTER [None]
  - BLOOD CREATININE INCREASED [None]
  - BLOOD GLUCOSE INCREASED [None]
  - EXCORIATION [None]
  - HAEMOGLOBIN DECREASED [None]
  - LOSS OF CONSCIOUSNESS [None]
  - ORTHOSTATIC HYPOTENSION [None]
